FAERS Safety Report 11932157 (Version 1)
Quarter: 2016Q1

REPORT INFORMATION
  Report Type: Spontaneous
  Country: US (occurrence: US)
  Receive Date: 20160120
  Receipt Date: 20160120
  Transmission Date: 20160526
  Serious: No
  Sender: FDA-Public Use
  Company Number: US-EISAI MEDICAL RESEARCH-EC-2016-013471

PATIENT
  Sex: Female

DRUGS (3)
  1. DONEPEZIL. [Suspect]
     Active Substance: DONEPEZIL
     Dosage: UNKNOWN
     Route: 048
     Dates: start: 2014, end: 2016
  2. DONEPEZIL. [Suspect]
     Active Substance: DONEPEZIL
     Indication: BRAIN INJURY
     Dosage: UNKNOWN
     Route: 048
     Dates: end: 2014
  3. DONEPEZIL. [Suspect]
     Active Substance: DONEPEZIL
     Dosage: UNKNOWN
     Route: 048
     Dates: start: 2016

REACTIONS (1)
  - Drug ineffective [Unknown]

NARRATIVE: CASE EVENT DATE: 2016
